FAERS Safety Report 10559906 (Version 1)
Quarter: 2014Q4

REPORT INFORMATION
  Report Type: Spontaneous
  Country: US (occurrence: None)
  Receive Date: 20141031
  Receipt Date: 20141031
  Transmission Date: 20150529
  Serious: Yes (Disabling)
  Sender: FDA-Public Use
  Company Number: None

PATIENT
  Age: 14 Year
  Sex: Female
  Weight: 49.9 kg

DRUGS (1)
  1. CLINDAMYCIN PHOSPHATE. [Suspect]
     Active Substance: CLINDAMYCIN PHOSPHATE
     Indication: ACNE
     Dosage: APPLIED TO A SURFACE, USUALLY THE SKIN
     Dates: start: 20140904, end: 20141010

REACTIONS (3)
  - Diarrhoea haemorrhagic [None]
  - Clostridium test positive [None]
  - Blood iron decreased [None]

NARRATIVE: CASE EVENT DATE: 20141014
